FAERS Safety Report 23620839 (Version 1)
Quarter: 2024Q1

REPORT INFORMATION
  Report Type: Spontaneous
  Country: US (occurrence: US)
  Receive Date: 20240312
  Receipt Date: 20240312
  Transmission Date: 20240409
  Serious: No
  Sender: FDA-Public Use
  Company Number: US-MACLEODS PHARMACEUTICALS US LTD-MAC2024046245

PATIENT

DRUGS (1)
  1. ZIPRASIDONE [Suspect]
     Active Substance: ZIPRASIDONE
     Indication: Product used for unknown indication
     Dosage: 60 MILLIGRAM (GTIN: 00333342146090, SR. NO. VWTVKBVT05CX)
     Route: 065
     Dates: start: 20231019

REACTIONS (1)
  - Drug ineffective [Unknown]
